FAERS Safety Report 19118037 (Version 1)
Quarter: 2021Q2

REPORT INFORMATION
  Report Type: Spontaneous
  Country: NO (occurrence: NO)
  Receive Date: 20210409
  Receipt Date: 20210409
  Transmission Date: 20210717
  Serious: Yes (Hospitalization)
  Sender: FDA-Public Use
  Company Number: NO-BAYER-2021-113779

PATIENT
  Age: 5 Year
  Sex: Male

DRUGS (2)
  1. POSACONAZOLE [Interacting]
     Active Substance: POSACONAZOLE
     Dosage: UNK
  2. NEXAVAR [Suspect]
     Active Substance: SORAFENIB
     Indication: ACUTE MYELOID LEUKAEMIA RECURRENT
     Dosage: NO INFORMATION ABOUT DOSE OR ROUTE OF ADMINISTRATION

REACTIONS (2)
  - Drug interaction [Unknown]
  - Cardiac failure [Unknown]

NARRATIVE: CASE EVENT DATE: 202101
